FAERS Safety Report 8780078 (Version 1)
Quarter: 2012Q4

REPORT INFORMATION
  Report Type: 
  Country: US (occurrence: US)
  Receive Date: 20120912
  Receipt Date: 20120912
  Transmission Date: 20130627
  Serious: No
  Sender: FDA-Public Use
  Company Number: US-VERTEX PHARMACEUTICAL INC.-AE-2011-000587

PATIENT
  Age: 62 Year
  Sex: Male
  Weight: 111.1 kg

DRUGS (8)
  1. INCIVEK [Suspect]
     Indication: HEPATITIS C
     Dosage: 750 mg, tid
     Route: 048
     Dates: start: 20110721
  2. PEGASYS [Concomitant]
     Indication: HEPATITIS C
     Dosage: 180 ?g, UNK
     Route: 058
     Dates: start: 20110721
  3. COPEGUS [Concomitant]
     Indication: HEPATITIS C
     Dosage: 600 mg, bid
     Route: 048
     Dates: start: 20110721
  4. VITAMIN B [Concomitant]
  5. VITAMIN E                          /00110501/ [Concomitant]
  6. GARLIC PILL [Concomitant]
  7. BABY ASPIRIN [Concomitant]
  8. LISINOPRIL/HYDROCHLOROTHIAZIDE [Concomitant]
     Dosage: UNK UNK, qd
     Route: 048

REACTIONS (5)
  - Haematochezia [Not Recovered/Not Resolved]
  - Anal pruritus [Not Recovered/Not Resolved]
  - Anorectal discomfort [Not Recovered/Not Resolved]
  - Frequent bowel movements [Recovered/Resolved]
  - Skin exfoliation [Recovered/Resolved]
